FAERS Safety Report 25927071 (Version 1)
Quarter: 2025Q4

REPORT INFORMATION
  Report Type: Spontaneous
  Country: US (occurrence: US)
  Receive Date: 20251015
  Receipt Date: 20251015
  Transmission Date: 20260117
  Serious: Yes (Other)
  Sender: ALEXION PHARMACEUTICALS
  Company Number: US-ASTRAZENECA-202510GLO010517US

PATIENT
  Sex: Male

DRUGS (12)
  1. NEXIUM [Suspect]
     Active Substance: ESOMEPRAZOLE MAGNESIUM
  2. LOSARTAN [Concomitant]
     Active Substance: LOSARTAN
  3. SIMVASTATIN [Concomitant]
     Active Substance: SIMVASTATIN
  4. TRAMADOL [Concomitant]
     Active Substance: TRAMADOL
  5. JANUMET [Concomitant]
     Active Substance: METFORMIN HYDROCHLORIDE\SITAGLIPTIN PHOSPHATE
  6. TYLENOL [Concomitant]
     Active Substance: ACETAMINOPHEN
  7. MONTELUKAST [Concomitant]
     Active Substance: MONTELUKAST
  8. SITAGLIPTIN [Concomitant]
     Active Substance: SITAGLIPTIN
  9. BIMATOPROST [Concomitant]
     Active Substance: BIMATOPROST
  10. FOLIC ACID [Concomitant]
     Active Substance: FOLIC ACID
  11. LOSARTAN POTASSIUM AND HYDROCHLOROTHIAZIDE [Concomitant]
     Active Substance: HYDROCHLOROTHIAZIDE\LOSARTAN POTASSIUM
  12. ACETAMINOPHEN [Concomitant]
     Active Substance: ACETAMINOPHEN

REACTIONS (1)
  - Gastric cancer [Unknown]
